FAERS Safety Report 21116941 (Version 3)
Quarter: 2022Q4

REPORT INFORMATION
  Report Type: Report from Study
  Country: US (occurrence: US)
  Receive Date: 20220722
  Receipt Date: 20221010
  Transmission Date: 20230113
  Serious: No
  Sender: FDA-Public Use
  Company Number: US-NOVARTISTESTPH-NVSC2022US165899

PATIENT
  Sex: Female

DRUGS (1)
  1. COSENTYX [Suspect]
     Active Substance: SECUKINUMAB
     Indication: Psoriasis
     Dosage: UNK
     Route: 065
     Dates: start: 20220614

REACTIONS (5)
  - Skin haemorrhage [Recovering/Resolving]
  - Pruritus [Not Recovered/Not Resolved]
  - Rash erythematous [Unknown]
  - Diarrhoea [Unknown]
  - Drug ineffective [Unknown]
